FAERS Safety Report 5585067-X (Version None)
Quarter: 2008Q1

REPORT INFORMATION
  Report Type: 
  Country: None (occurrence: None)
  Receive Date: 20080104
  Receipt Date: 20080104
  Transmission Date: 20080703
  Serious: Yes (Hospitalization)
  Sender: FDA-Public Use
  Company Number: None

PATIENT
  Age: 20 Year
  Sex: Female

DRUGS (1)
  1. BACTRIM [Suspect]
     Indication: URINARY TRACT INFECTION

REACTIONS (1)
  - ANAPHYLACTIC REACTION [None]
